FAERS Safety Report 4465196-4 (Version None)
Quarter: 2004Q4

REPORT INFORMATION
  Report Type: 
  Country: None (occurrence: None)
  Receive Date: 20041004
  Receipt Date: 20030314
  Transmission Date: 20050328
  Serious: Yes (Other)
  Sender: FDA-Public Use
  Company Number: JP-ABBOTT-03P-087-0213688-00

PATIENT
  Sex: Male

DRUGS (26)
  1. PRERAN [Suspect]
     Indication: HYPERTENSION
     Route: 048
     Dates: start: 20020628, end: 20030219
  2. BLOPRESS TABLETS [Suspect]
     Indication: HYPERTENSION
     Route: 048
     Dates: start: 20020628, end: 20020911
  3. OMEPRAZOLE [Suspect]
     Indication: GASTRITIS
     Route: 048
     Dates: start: 20020402, end: 20030219
  4. ACETYLSALICYLIC ACID [Suspect]
     Indication: PLATELET AGGREGATION
     Route: 048
     Dates: start: 20010921, end: 20030219
  5. ALLOPURINOL [Suspect]
     Indication: HYPERURICAEMIA
     Route: 048
     Dates: start: 20000419, end: 20030219
  6. ALPROSTADIL [Suspect]
     Indication: SKIN ULCER
     Route: 048
     Dates: start: 20021211, end: 20030117
  7. ALPROSTADIL [Suspect]
     Indication: ATHEROSCLEROSIS OBLITERANS
     Route: 048
     Dates: start: 20030127, end: 20030214
  8. PRONASE [Suspect]
     Indication: NASOPHARYNGITIS
     Route: 048
     Dates: start: 20030214, end: 20030219
  9. SARPOGRELATE HYDROCHLORIDE [Suspect]
     Indication: PLATELET AGGREGATION
     Route: 048
     Dates: start: 20011127, end: 20030219
  10. ISOSORBIDE DINITRATE [Concomitant]
     Indication: DRUG USE FOR UNKNOWN INDICATION
     Dates: start: 20000419
  11. CALCIUM CARBONATE [Concomitant]
     Indication: DRUG USE FOR UNKNOWN INDICATION
     Dates: start: 20000419
  12. TEPRENONE [Concomitant]
     Indication: DRUG USE FOR UNKNOWN INDICATION
     Dates: start: 20000419
  13. TEPRENONE [Concomitant]
  14. DOXAZOSIN MESYLATE [Concomitant]
     Indication: DRUG USE FOR UNKNOWN INDICATION
     Dates: start: 20000419
  15. DOXAZOSIN MESYLATE [Concomitant]
  16. SENNA LEAF [Concomitant]
     Indication: DRUG USE FOR UNKNOWN INDICATION
     Dates: start: 20000419
  17. SENNA LEAF [Concomitant]
  18. INSULIN HUMAN [Concomitant]
     Indication: DRUG USE FOR UNKNOWN INDICATION
     Dates: start: 20000419
  19. INSULIN HUMAN [Concomitant]
  20. AMLODIPINE BESYLATE [Concomitant]
     Indication: DRUG USE FOR UNKNOWN INDICATION
     Dates: start: 20001117
  21. AMLODIPINE BESYLATE [Concomitant]
  22. NIFEDIPINE [Concomitant]
     Indication: DRUG USE FOR UNKNOWN INDICATION
     Route: 048
     Dates: start: 20010209
  23. NIFEDIPINE [Concomitant]
  24. MENATETRENONE [Concomitant]
     Indication: DRUG USE FOR UNKNOWN INDICATION
     Dates: start: 20011116
  25. MENATETRENONE [Concomitant]
  26. PL GRAN. [Concomitant]
     Indication: DRUG USE FOR UNKNOWN INDICATION
     Dates: start: 20030214, end: 20030221

REACTIONS (3)
  - CONDITION AGGRAVATED [None]
  - HYPERTENSION [None]
  - PLATELET COUNT DECREASED [None]
